FAERS Safety Report 24386532 (Version 1)
Quarter: 2024Q4

REPORT INFORMATION
  Report Type: Spontaneous
  Country: GB (occurrence: GB)
  Receive Date: 20241002
  Receipt Date: 20241002
  Transmission Date: 20250114
  Serious: Yes (Other)
  Sender: ACCORD
  Company Number: None

PATIENT

DRUGS (1)
  1. PRASUGREL [Suspect]
     Active Substance: PRASUGREL
     Indication: Product used for unknown indication
     Dosage: PRASUGREL 10MG TABLET
     Dates: start: 20240910, end: 20240914

REACTIONS (1)
  - Urticaria [Recovering/Resolving]
